FAERS Safety Report 6848496-X (Version None)
Quarter: 2010Q3

REPORT INFORMATION
  Report Type: 
  Country: None (occurrence: None)
  Receive Date: 20100716
  Receipt Date: 20100709
  Transmission Date: 20110219
  Serious: Yes (Hospitalization)
  Sender: FDA-Public Use
  Company Number: US-JNJFOC-20100508083

PATIENT
  Sex: Female
  Weight: 14.52 kg

DRUGS (4)
  1. CHILDREN'S TYLENOL SUSPENSION [Suspect]
     Indication: NASOPHARYNGITIS
     Dosage: 3 TIMES PER DAY
     Route: 048
  2. CHILDREN'S TYLENOL SUSPENSION [Suspect]
     Indication: PYREXIA
     Dosage: 3 TIMES PER DAY
     Route: 048
  3. CHILDREN'S TYLENOL SUSPENSION [Suspect]
     Indication: OROPHARYNGEAL PAIN
     Dosage: 3 TIMES PER DAY
     Route: 048
  4. CHILDREN'S TYLENOL SUSPENSION [Suspect]
     Dosage: 3 TIMES PER DAY
     Route: 048

REACTIONS (2)
  - PRODUCT QUALITY ISSUE [None]
  - ROTAVIRUS INFECTION [None]
